FAERS Safety Report 13407751 (Version 1)
Quarter: 2017Q2

REPORT INFORMATION
  Report Type: Report from Study
  Country: CN (occurrence: CN)
  Receive Date: 20170406
  Receipt Date: 20170406
  Transmission Date: 20170830
  Serious: Yes (Death)
  Sender: FDA-Public Use
  Company Number: CN-ROCHE-1916030

PATIENT

DRUGS (2)
  1. ALTEPLASE [Suspect]
     Active Substance: ALTEPLASE
     Indication: ISCHAEMIC STROKE
     Dosage: 0.9 MG/KG, AFTER 60S OF INTRAVENOUS BOLUS INJECTION.
     Route: 040
  2. ALTEPLASE [Suspect]
     Active Substance: ALTEPLASE
     Dosage: THE REST RT-PA SOLUBLE IN 0.9 PERCENT NACL INJECTION 250ML THROUGH INTRAVENOUS DRIP, LAST FOR 1 HOUR
     Route: 041

REACTIONS (1)
  - Death [Fatal]
